FAERS Safety Report 20894403 (Version 3)
Quarter: 2023Q1

REPORT INFORMATION
  Report Type: Spontaneous
  Country: JP (occurrence: JP)
  Receive Date: 20220531
  Receipt Date: 20230308
  Transmission Date: 20230418
  Serious: Yes (Hospitalization, Other)
  Sender: FDA-Public Use
  Company Number: JP-ASTELLAS-2022JP007595

PATIENT
  Age: 67 Year
  Sex: Female

DRUGS (5)
  1. PADCEV [Suspect]
     Active Substance: ENFORTUMAB VEDOTIN-EJFV
     Indication: Transitional cell carcinoma
     Dosage: 1.25 MG/KG, ONCE WEEKLY X 3 TIMES FOLLOWED BY 1 WEEK REST
     Route: 041
     Dates: start: 20220411, end: 20220425
  2. PADCEV [Suspect]
     Active Substance: ENFORTUMAB VEDOTIN-EJFV
     Indication: Ureteric cancer
     Dosage: 1.0 MG/KG, ONCE WEEKLY X 3 TIMES FOLLOWED BY 1 WEEK REST
     Route: 041
     Dates: start: 20220523
  3. PADCEV [Suspect]
     Active Substance: ENFORTUMAB VEDOTIN-EJFV
     Indication: Bladder cancer
     Dosage: 1.0 MG/KG, ONCE WEEKLY X 3 TIMES FOLLOWED BY 1 WEEK REST
     Route: 041
     Dates: start: 20220620, end: 20220717
  4. URSO [Concomitant]
     Active Substance: URSODIOL
     Indication: Aspartate aminotransferase increased
     Dosage: UNK UNK, UNKNOWN FREQ.
     Route: 065
  5. URSO [Concomitant]
     Active Substance: URSODIOL
     Indication: Alanine aminotransferase increased

REACTIONS (11)
  - Interstitial lung disease [Recovering/Resolving]
  - Neutropenia [Recovered/Resolved]
  - Cellulitis [Recovered/Resolved]
  - Sinus tachycardia [Recovered/Resolved]
  - Oedema peripheral [Not Recovered/Not Resolved]
  - Erythema [Recovered/Resolved]
  - Pruritus [Recovered/Resolved]
  - Anaemia [Recovering/Resolving]
  - Aspartate aminotransferase increased [Not Recovered/Not Resolved]
  - Alanine aminotransferase increased [Not Recovered/Not Resolved]
  - Alopecia [Not Recovered/Not Resolved]

NARRATIVE: CASE EVENT DATE: 20220425
